FAERS Safety Report 21941156 (Version 1)
Quarter: 2023Q1

REPORT INFORMATION
  Report Type: Report from Study
  Country: US (occurrence: US)
  Receive Date: 20230202
  Receipt Date: 20230202
  Transmission Date: 20230418
  Serious: No
  Sender: FDA-Public Use
  Company Number: US-EXELIXIS-CABO-22053227

PATIENT
  Age: 68 Year
  Sex: Male

DRUGS (6)
  1. CABOMETYX [Suspect]
     Active Substance: CABOZANTINIB S-MALATE
     Indication: Oropharyngeal cancer
     Dosage: 40 MG
     Route: 048
     Dates: start: 2020
  2. CABOMETYX [Suspect]
     Active Substance: CABOZANTINIB S-MALATE
     Indication: Squamous cell carcinoma
     Dosage: 20 MG, QD
     Route: 048
     Dates: start: 20220627
  3. KEYTRUDA [Suspect]
     Active Substance: PEMBROLIZUMAB
     Indication: Oropharyngeal cancer
     Dosage: UNK UNK, Q3WEEKS
  4. KEYTRUDA [Suspect]
     Active Substance: PEMBROLIZUMAB
     Indication: Squamous cell carcinoma
  5. ATORVASTATIN [Concomitant]
     Active Substance: ATORVASTATIN
     Dosage: UNK
  6. MAGNESIUM [Concomitant]
     Active Substance: MAGNESIUM
     Dosage: UNK

REACTIONS (13)
  - Gastrointestinal disorder [Unknown]
  - Contusion [Unknown]
  - Skin atrophy [Unknown]
  - Hair colour changes [Unknown]
  - Diarrhoea [Recovered/Resolved]
  - Mucosal inflammation [Recovered/Resolved]
  - Weight decreased [Unknown]
  - Blood magnesium decreased [Unknown]
  - Muscle spasms [Not Recovered/Not Resolved]
  - Blood pressure increased [Recovered/Resolved]
  - Dyspepsia [Unknown]
  - Hyperchlorhydria [Unknown]
  - Off label use [Unknown]

NARRATIVE: CASE EVENT DATE: 20220810
